FAERS Safety Report 23133347 (Version 1)
Quarter: 2023Q4

REPORT INFORMATION
  Report Type: Spontaneous
  Country: GB (occurrence: GB)
  Receive Date: 20231101
  Receipt Date: 20231101
  Transmission Date: 20240110
  Serious: Yes (Life-Threatening, Hospitalization, Other)
  Sender: FDA-Public Use
  Company Number: GB-MLMSERVICE-20231016-4611406-1

PATIENT
  Age: 27 Year
  Sex: Female

DRUGS (1)
  1. AMITRIPTYLINE [Suspect]
     Active Substance: AMITRIPTYLINE
     Indication: Depression
     Route: 048
     Dates: start: 202304

REACTIONS (14)
  - Hyperlactacidaemia [Recovered/Resolved]
  - Overdose [Recovered/Resolved]
  - Circulatory collapse [Recovered/Resolved]
  - Cardiac failure [Recovered/Resolved]
  - Cardiogenic shock [Recovered/Resolved]
  - Seizure [Recovered/Resolved]
  - Hypoperfusion [Recovered/Resolved]
  - Hypotension [Recovered/Resolved]
  - Toxicity to various agents [Recovered/Resolved]
  - Sinus tachycardia [Recovered/Resolved]
  - Metabolic acidosis [Recovered/Resolved]
  - Shock [Recovered/Resolved]
  - Ventricular tachycardia [Recovered/Resolved]
  - Ventricular hypokinesia [Recovered/Resolved]

NARRATIVE: CASE EVENT DATE: 20230401
